FAERS Safety Report 7532789-7 (Version None)
Quarter: 2011Q2

REPORT INFORMATION
  Report Type: 
  Country: None (occurrence: None)
  Receive Date: 20110608
  Receipt Date: 20110601
  Transmission Date: 20111010
  Serious: Yes (Other)
  Sender: FDA-Public Use
  Company Number: B0723740A

PATIENT
  Sex: Female

DRUGS (1)
  1. LAMOTRIGINE [Suspect]
     Indication: EPILEPSY
     Route: 065

REACTIONS (14)
  - DIPLOPIA [None]
  - IRRITABILITY [None]
  - INFLUENZA LIKE ILLNESS [None]
  - SOMNOLENCE [None]
  - VISION BLURRED [None]
  - INSOMNIA [None]
  - PYREXIA [None]
  - RASH [None]
  - EPISTAXIS [None]
  - ARTHRALGIA [None]
  - BACK PAIN [None]
  - DIZZINESS [None]
  - COORDINATION ABNORMAL [None]
  - TREMOR [None]
